FAERS Safety Report 5712393-3 (Version None)
Quarter: 2008Q2

REPORT INFORMATION
  Report Type: 
  Country: None (occurrence: None)
  Receive Date: 20080422
  Receipt Date: 20080410
  Transmission Date: 20081010
  Serious: Yes (Hospitalization, Other)
  Sender: FDA-Public Use
  Company Number: PHHY2008JP04614

PATIENT
  Age: 53 Year
  Sex: Male

DRUGS (11)
  1. METOPROLOL TARTRATE [Suspect]
     Dosage: 20 MG/DAY
     Route: 048
  2. FAMOTIDINE [Concomitant]
     Dosage: 10MG/DAY
  3. HYDROCORTISONE [Concomitant]
     Dosage: 10 MG/DAY
  4. NIFEDIPINE [Concomitant]
     Dosage: 40MG/DAY
  5. AMLODIPINE BESILATE [Concomitant]
     Dosage: 10MG/DAY
  6. OLMESARTAN MEDOXOMIL [Concomitant]
     Dosage: 40MG/DAY
  7. BERAPROST SODIUM [Concomitant]
     Dosage: 120 UG,/DAY
  8. MECOBALAMIN [Concomitant]
     Dosage: 1500 UG/DAY
  9. SEVELAMER HYDROCHLORIDE [Concomitant]
     Dosage: 2.25 G/DAY
  10. TANSAN CALCIUM [Concomitant]
     Dosage: 3 G/DAY
  11. NICORANDIL [Concomitant]
     Dosage: 15MG/DAY

REACTIONS (27)
  - ANTIBODY TEST POSITIVE [None]
  - AUTOIMMUNE THROMBOCYTOPENIA [None]
  - BLOOD CREATININE INCREASED [None]
  - BLOOD IMMUNOGLOBULIN E INCREASED [None]
  - BLOOD PRESSURE INCREASED [None]
  - BRONCHOSCOPY ABNORMAL [None]
  - CARDIOMEGALY [None]
  - COMPUTERISED TOMOGRAM ABNORMAL [None]
  - COUGH [None]
  - DIALYSIS [None]
  - DRUG ERUPTION [None]
  - ELECTROCARDIOGRAM ABNORMAL [None]
  - ELECTROCARDIOGRAM ST-T CHANGE [None]
  - EOSINOPHILIA [None]
  - EOSINOPHILIC PNEUMONIA [None]
  - FATIGUE [None]
  - HAEMOSTASIS [None]
  - LYMPHOCYTE STIMULATION TEST POSITIVE [None]
  - NEPHRITIS [None]
  - OEDEMA [None]
  - PLATELET COUNT DECREASED [None]
  - PULMONARY MASS [None]
  - RALES [None]
  - RESPIRATORY DISTRESS [None]
  - SPUTUM CULTURE POSITIVE [None]
  - STRIDOR [None]
  - X-RAY ABNORMAL [None]
